FAERS Safety Report 6357641-4 (Version None)
Quarter: 2009Q3

REPORT INFORMATION
  Report Type: 
  Country: None (occurrence: None)
  Receive Date: 20090916
  Receipt Date: 20090715
  Transmission Date: 20100115
  Serious: No
  Sender: FDA-Public Use
  Company Number: US-AMGEN-US351265

PATIENT
  Sex: Male
  Weight: 92.6 kg

DRUGS (7)
  1. NPLATE [Suspect]
     Indication: IDIOPATHIC THROMBOCYTOPENIC PURPURA
     Route: 058
     Dates: start: 20090507
  2. AMLODIPINE [Concomitant]
  3. ATENOLOL [Concomitant]
  4. FLOMAX [Concomitant]
  5. FOLATE SODIUM [Concomitant]
  6. PREDNISONE [Concomitant]
  7. TRICOR [Concomitant]

REACTIONS (1)
  - URTICARIA [None]
